FAERS Safety Report 6043651-3 (Version None)
Quarter: 2009Q1

REPORT INFORMATION
  Report Type: 
  Country: None (occurrence: None)
  Receive Date: 20090115
  Receipt Date: 20090115
  Transmission Date: 20090719
  Serious: Yes (Hospitalization)
  Sender: FDA-Public Use
  Company Number: None

PATIENT
  Age: 22 Year
  Sex: Male
  Weight: 86 kg

DRUGS (1)
  1. HALDOL [Suspect]
     Indication: PSYCHOTIC DISORDER
     Dosage: 2 TABLETS 2 TIMES A DAY PO
     Route: 049
     Dates: start: 20090104, end: 20090108

REACTIONS (6)
  - ABASIA [None]
  - APHASIA [None]
  - GAIT DISTURBANCE [None]
  - MUSCLE SPASTICITY [None]
  - SPEECH DISORDER [None]
  - TREMOR [None]
